FAERS Safety Report 24749260 (Version 1)
Quarter: 2024Q4

REPORT INFORMATION
  Report Type: Report from Study
  Country: IT (occurrence: IT)
  Receive Date: 20241218
  Receipt Date: 20241218
  Transmission Date: 20250115
  Serious: Yes (Other)
  Sender: MYLAN
  Company Number: IT-JAZZ PHARMACEUTICALS-2024-IT-022568

PATIENT
  Age: 11 Year
  Sex: Female

DRUGS (1)
  1. EVEROLIMUS [Suspect]
     Active Substance: EVEROLIMUS
     Indication: Product used for unknown indication
     Dosage: UNK
     Route: 065

REACTIONS (10)
  - Self-destructive behaviour [Unknown]
  - Behaviour disorder [Unknown]
  - Drug tolerance [Unknown]
  - Appetite disorder [Unknown]
  - Aphthous ulcer [Unknown]
  - Aggression [Unknown]
  - Agitation [Unknown]
  - Anxiety [Unknown]
  - Abdominal pain upper [Unknown]
  - Therapeutic response unexpected [Unknown]
